FAERS Safety Report 8491962 (Version 3)
Quarter: 2013Q2

REPORT INFORMATION
  Report Type: Spontaneous
  Country: US (occurrence: None)
  Receive Date: 20120321
  Receipt Date: 20120713
  Transmission Date: 20140414
  Serious: Yes (Other)
  Sender: FDA-Public Use
  Company Number: PHHY2011US18994

PATIENT
  Age: 62 Year
  Sex: Female
  Weight: 63 kg

DRUGS (1)
  1. ILARIS [Suspect]
     Indication: FAMILIAL COLD AUTOINFLAMMATORY SYNDROME
     Dosage: 150 MG, EVERY 8 WEEKS, SUBCUTANEOUS
     Route: 058
     Dates: start: 20101007

REACTIONS (3)
  - WEIGHT INCREASED [None]
  - INCREASED APPETITE [None]
  - GASTROINTESTINAL DISORDER [None]
